FAERS Safety Report 7339976-1 (Version None)
Quarter: 2011Q1

REPORT INFORMATION
  Report Type: 
  Country: None (occurrence: None)
  Receive Date: 20110309
  Receipt Date: 20110302
  Transmission Date: 20110831
  Serious: Yes (Other)
  Sender: FDA-Public Use
  Company Number: US-PFIZER INC-2011013116

PATIENT
  Age: 66 Year
  Sex: Male

DRUGS (9)
  1. LISINOPRIL [Concomitant]
  2. ALLOPURINOL [Concomitant]
  3. SOTALOL [Concomitant]
  4. PLAVIX [Concomitant]
  5. ACETYLSALICYLIC ACID [Concomitant]
     Indication: ATRIAL FIBRILLATION
     Dosage: UNK
  6. LIPITOR [Concomitant]
  7. CELEBREX [Suspect]
     Indication: TENDONITIS
     Dosage: 200 MG DAILY
  8. GEMFIBROZIL [Concomitant]
  9. NAPROXEN [Suspect]
     Indication: TENDON DISORDER
     Dosage: UNK

REACTIONS (4)
  - MYOCARDIAL INFARCTION [None]
  - THROMBOSIS [None]
  - TINNITUS [None]
  - CEREBROVASCULAR ACCIDENT [None]
